FAERS Safety Report 9712100 (Version 2)
Quarter: 2013Q4

REPORT INFORMATION
  Report Type: Spontaneous
  Country: US (occurrence: US)
  Receive Date: 20131126
  Receipt Date: 20131126
  Transmission Date: 20140711
  Serious: No
  Sender: FDA-Public Use
  Company Number: US-BRISTOL-MYERS SQUIBB COMPANY-18845065

PATIENT
  Age: 68 Year
  Sex: Female
  Weight: 61.22 kg

DRUGS (3)
  1. BYDUREON [Suspect]
     Dosage: 15-18 BYDUREON INJECTIONS ,LOT NO:73177 EXPDT:APR14
  2. METFORMIN HCL TABS [Concomitant]
  3. GLIPIZIDE [Concomitant]
     Dosage: 1DF:TAB 3 TIMES A DAY

REACTIONS (1)
  - Injection site mass [Unknown]
